FAERS Safety Report 5804884-1 (Version None)
Quarter: 2008Q3

REPORT INFORMATION
  Report Type: 
  Country: None (occurrence: None)
  Receive Date: 20080709
  Receipt Date: 20080702
  Transmission Date: 20090109
  Serious: Yes (Other)
  Sender: FDA-Public Use
  Company Number: GR-ELI_LILLY_AND_COMPANY-GR200807000446

PATIENT
  Age: 45 Year
  Sex: Female
  Weight: 45 kg

DRUGS (2)
  1. CYMBALTA [Suspect]
     Indication: DEPRESSION
     Dosage: 60 MG, DAILY (1/D)
     Route: 048
     Dates: start: 20080626, end: 20080627
  2. CALCIUM [Concomitant]
     Indication: OSTEOPOROSIS
     Dosage: UNK, DAILY (1/D)
     Route: 048

REACTIONS (4)
  - ANOREXIA [None]
  - ASTHENIA [None]
  - MUSCULAR WEAKNESS [None]
  - NAUSEA [None]
